FAERS Safety Report 22205704 (Version 3)
Quarter: 2023Q2

REPORT INFORMATION
  Report Type: Report from Study
  Country: ES (occurrence: ES)
  Receive Date: 20230413
  Receipt Date: 20230517
  Transmission Date: 20230721
  Serious: Yes (Other)
  Sender: FDA-Public Use
  Company Number: ES-JNJFOC-20230417093

PATIENT
  Age: 79 Year
  Sex: Male

DRUGS (7)
  1. IBRUTINIB [Suspect]
     Active Substance: IBRUTINIB
     Indication: Waldenstrom^s macroglobulinaemia
     Route: 048
     Dates: start: 20181211, end: 20230123
  2. CEFDITOREN [Concomitant]
     Active Substance: CEFDITOREN
     Indication: Product used for unknown indication
  3. TAMSULOSIN [Concomitant]
     Active Substance: TAMSULOSIN
     Indication: Benign prostatic hyperplasia
  4. ALLOPURINOL [Concomitant]
     Active Substance: ALLOPURINOL
     Indication: Hyperuricaemia
  5. DUTASTERIDE EG [Concomitant]
     Indication: Benign prostatic hyperplasia
  6. ACYCLOVIR [Concomitant]
     Active Substance: ACYCLOVIR
     Indication: Antiviral prophylaxis
     Dates: start: 20201209, end: 20230303
  7. OMEPRAZOLE [Concomitant]
     Active Substance: OMEPRAZOLE
     Indication: Prophylaxis against gastrointestinal ulcer

REACTIONS (1)
  - Cystoid macular oedema [Recovered/Resolved]

NARRATIVE: CASE EVENT DATE: 20230123
